FAERS Safety Report 24362109 (Version 1)
Quarter: 2024Q3

REPORT INFORMATION
  Report Type: Spontaneous
  Country: TW (occurrence: TW)
  Receive Date: 20240925
  Receipt Date: 20240925
  Transmission Date: 20241017
  Serious: Yes (Other)
  Sender: NOVARTIS
  Company Number: TW-002147023-NVSC2024TW188253

PATIENT
  Age: 83 Year
  Sex: Female

DRUGS (1)
  1. ZOMETA [Suspect]
     Active Substance: ZOLEDRONIC ACID
     Indication: Plasma cell myeloma
     Dosage: STARTED RECEIVING FOR A DURATION OF 7 MONTHS
     Route: 042

REACTIONS (2)
  - Osteonecrosis of jaw [Unknown]
  - Bone pain [Unknown]
